FAERS Safety Report 6578030-3 (Version None)
Quarter: 2010Q1

REPORT INFORMATION
  Report Type: 
  Country: None (occurrence: None)
  Receive Date: 20100211
  Receipt Date: 20100203
  Transmission Date: 20100710
  Serious: Yes (Hospitalization)
  Sender: FDA-Public Use
  Company Number: JP-ABBOTT-09P-087-0614752-00

PATIENT
  Sex: Female
  Weight: 55.1 kg

DRUGS (18)
  1. KALETRA [Suspect]
     Indication: HIV INFECTION
     Dosage: 4 TABLETS DAILY
     Route: 048
     Dates: start: 20080501, end: 20081202
  2. VALPROATE SODIUM [Suspect]
     Indication: CONVULSION PROPHYLAXIS
     Route: 048
     Dates: start: 20080708, end: 20080807
  3. GABAPENTIN [Suspect]
     Indication: CONVULSION PROPHYLAXIS
     Route: 048
     Dates: start: 20080808
  4. LAMIVUDINE [Concomitant]
     Indication: HIV INFECTION
     Route: 048
     Dates: start: 20080501, end: 20080622
  5. ABACAVIR SULFATE [Concomitant]
     Indication: HIV INFECTION
     Route: 048
     Dates: start: 20080501, end: 20080622
  6. EMTRICITABINE AND TENOFOVIR DISOPROXIL FUMARATE [Concomitant]
     Indication: HIV INFECTION
     Dosage: 1 TABLET DAILY
     Route: 048
     Dates: start: 20080623
  7. DARUNAVIR [Concomitant]
     Indication: HIV INFECTION
     Dosage: 900MG DAILY
     Route: 048
     Dates: start: 20081203
  8. GANCICLOVIR [Concomitant]
     Indication: CYTOMEGALOVIRUS VIRAEMIA
     Route: 050
     Dates: start: 20080414, end: 20080503
  9. VALGANCICLOVIR HCL [Concomitant]
     Indication: CYTOMEGALOVIRUS VIRAEMIA
     Route: 048
     Dates: start: 20080530, end: 20080613
  10. VALGANCICLOVIR HCL [Concomitant]
     Route: 048
     Dates: start: 20080614, end: 20080627
  11. AZITHROMYCIN [Concomitant]
     Indication: OPPORTUNISTIC INFECTION PROPHYLAXIS
     Route: 048
     Dates: start: 20080527, end: 20080724
  12. FOSCARNET SODIUM [Concomitant]
     Indication: CYTOMEGALOVIRUS VIRAEMIA
     Dates: start: 20080504, end: 20080509
  13. ENTECAVIR [Concomitant]
     Indication: ANTIVIRAL PROPHYLAXIS
     Dates: start: 20080410, end: 20080702
  14. EPIRIZOLE [Concomitant]
     Indication: ANTIFUNGAL PROPHYLAXIS
     Dates: start: 20080501, end: 20080724
  15. PREDNISOLONE [Concomitant]
     Indication: PROPHYLAXIS
     Dates: start: 20080502, end: 20080515
  16. PREDNISOLONE [Concomitant]
     Dosage: 2.5 MG TO 16 MG TWICE PER A DAY
     Dates: start: 20080612, end: 20080718
  17. METHYLPREDNISOLONE [Concomitant]
     Indication: PROPHYLAXIS
     Dosage: 4 MG TO 12 MG TWICE PER A DAY
     Dates: start: 20080516, end: 20080611
  18. PHENYTOIN [Concomitant]
     Indication: CONVULSION PROPHYLAXIS
     Dates: start: 20080706, end: 20080707

REACTIONS (5)
  - BLOOD ALKALINE PHOSPHATASE INCREASED [None]
  - BLOOD TRIGLYCERIDES INCREASED [None]
  - EPILEPSY [None]
  - GAMMA-GLUTAMYLTRANSFERASE INCREASED [None]
  - HEPATIC FUNCTION ABNORMAL [None]
